FAERS Safety Report 9557748 (Version 1)
Quarter: 2013Q3

REPORT INFORMATION
  Report Type: Spontaneous
  Country: US (occurrence: US)
  Receive Date: 20130926
  Receipt Date: 20130926
  Transmission Date: 20140515
  Serious: Yes (Hospitalization, Other)
  Sender: FDA-Public Use
  Company Number: PHHY2013US104584

PATIENT
  Age: 56 Year
  Sex: Female

DRUGS (5)
  1. TRIAMCINOLONE [Suspect]
     Route: 061
  2. CLOBETASOL [Interacting]
     Route: 061
  3. TELAPREVIR [Interacting]
     Dosage: 750 MG, EVERY 8 HOURS
  4. PEGINTERFERON ALFA-2A [Concomitant]
  5. RIBAVIRIN [Concomitant]

REACTIONS (8)
  - Adrenal insufficiency [Unknown]
  - Diarrhoea [Unknown]
  - Malaise [Unknown]
  - Fatigue [Unknown]
  - Asthenia [Unknown]
  - Lethargy [Unknown]
  - Drug interaction [Unknown]
  - Blood pressure abnormal [Unknown]
